FAERS Safety Report 22299062 (Version 4)
Quarter: 2023Q4

REPORT INFORMATION
  Report Type: Spontaneous
  Country: US (occurrence: US)
  Receive Date: 20230509
  Receipt Date: 20231003
  Transmission Date: 20240110
  Serious: No
  Sender: FDA-Public Use
  Company Number: US-PFIZER INC-202300178170

PATIENT
  Age: 14 Year
  Sex: Male
  Weight: 73.03 kg

DRUGS (1)
  1. GENOTROPIN [Suspect]
     Active Substance: SOMATROPIN
     Indication: Growth hormone deficiency
     Dosage: 2.2 DAILY

REACTIONS (3)
  - Device difficult to use [Unknown]
  - Injection site pain [Unknown]
  - Stress [Unknown]
